FAERS Safety Report 11148150 (Version 1)
Quarter: 2015Q2

REPORT INFORMATION
  Report Type: Spontaneous
  Country: CH (occurrence: CH)
  Receive Date: 20150529
  Receipt Date: 20150529
  Transmission Date: 20150821
  Serious: Yes (Other)
  Sender: FDA-Public Use
  Company Number: CH-JNJFOC-20150209169

PATIENT
  Age: 10 Year
  Sex: Male

DRUGS (2)
  1. KETOCONAZOLE. [Suspect]
     Active Substance: KETOCONAZOLE
     Indication: CUSHING^S SYNDROME
     Route: 065
  2. KETOCONAZOLE. [Suspect]
     Active Substance: KETOCONAZOLE
     Indication: CUSHING^S SYNDROME
     Route: 065

REACTIONS (2)
  - Off label use [Unknown]
  - Multi-organ failure [Unknown]
